FAERS Safety Report 4275136-9 (Version None)
Quarter: 2004Q1

REPORT INFORMATION
  Report Type: 
  Country: None (occurrence: None)
  Receive Date: 20040121
  Receipt Date: 20031202
  Transmission Date: 20041129
  Serious: Yes (Life-Threatening, Hospitalization, Other)
  Sender: FDA-Public Use
  Company Number: 200322270GDDC

PATIENT
  Age: 46 Year
  Sex: Female

DRUGS (6)
  1. TAXOTERE [Suspect]
     Indication: BREAST CANCER
     Dosage: DOSE: UNK
     Dates: start: 19991130, end: 20000112
  2. DOXORUBICIN HCL [Suspect]
     Indication: BREAST CANCER
     Dosage: DOSE: UNK
     Dates: start: 19991130, end: 20000112
  3. CYCLOPHOSPHAMIDE [Suspect]
     Indication: BREAST CANCER
     Dosage: DOSE: UNK
     Dates: start: 19991130, end: 20000310
  4. MITOXANTRONE [Suspect]
     Indication: BREAST CANCER
     Dosage: DOSE: UNK
     Dates: start: 20000307, end: 20000310
  5. VINORELBINE [Suspect]
     Indication: BREAST CANCER
     Dosage: DOSE: UNK
     Dates: start: 20000307, end: 20000311
  6. TAMOXIFEN CITRATE [Suspect]
     Indication: BREAST CANCER
     Dosage: DOSE: UNK
     Dates: start: 20000419, end: 20031126

REACTIONS (4)
  - ACUTE MYELOID LEUKAEMIA [None]
  - ASTHENIA [None]
  - AUTOLOGOUS BONE MARROW TRANSPLANTATION THERAPY [None]
  - DYSPNOEA [None]
